FAERS Safety Report 5840138-5 (Version None)
Quarter: 2008Q3

REPORT INFORMATION
  Report Type: 
  Country: None (occurrence: None)
  Receive Date: 20080807
  Receipt Date: 20080807
  Transmission Date: 20090109
  Serious: Yes (Other)
  Sender: FDA-Public Use
  Company Number: None

PATIENT
  Age: 84 Year
  Sex: Female
  Weight: 70.3075 kg

DRUGS (1)
  1. DIGITEK .125 [Suspect]
     Indication: ATRIAL FIBRILLATION
     Dosage: 1 DAILY

REACTIONS (1)
  - VERTIGO [None]
